FAERS Safety Report 6144441-3 (Version None)
Quarter: 2009Q2

REPORT INFORMATION
  Report Type: 
  Country: None (occurrence: None)
  Receive Date: 20090406
  Receipt Date: 20090324
  Transmission Date: 20091009
  Serious: Yes (Hospitalization)
  Sender: FDA-Public Use
  Company Number: FR-ROCHE-623832

PATIENT
  Sex: Male
  Weight: 55 kg

DRUGS (10)
  1. PEGASYS [Suspect]
     Route: 058
     Dates: start: 20071012, end: 20081030
  2. RIMIFON [Suspect]
     Indication: ANTIBIOTIC THERAPY
     Route: 048
     Dates: start: 20081114
  3. MYAMBUTOL [Suspect]
     Indication: ANTIBIOTIC THERAPY
     Route: 048
     Dates: start: 20081114, end: 20090219
  4. PIRILENE [Suspect]
     Indication: ANTIBIOTIC THERAPY
     Route: 048
     Dates: start: 20081114, end: 20090219
  5. RIFADIN [Concomitant]
     Indication: ANTIBIOTIC THERAPY
     Route: 048
     Dates: start: 20081114
  6. REBETOL [Concomitant]
     Route: 048
     Dates: start: 20071012, end: 20081113
  7. NEORECORMON [Concomitant]
     Dates: start: 20080901
  8. FERROUS SULFATE TAB [Concomitant]
  9. TARKA [Concomitant]
     Indication: HYPERTENSION
     Dosage: DRUG NAME REPORTED AS ^TARKA LP^
  10. VASTAREL [Concomitant]
     Indication: TINNITUS
     Dosage: DRUG NAME REPORTED AS ^VASTAREL LP^

REACTIONS (2)
  - NEUROPATHY PERIPHERAL [None]
  - SENSORIMOTOR DISORDER [None]
